FAERS Safety Report 10056835 (Version 1)
Quarter: 2014Q2

REPORT INFORMATION
  Report Type: Report from Study
  Country: US (occurrence: US)
  Receive Date: 20140403
  Receipt Date: 20140403
  Transmission Date: 20141212
  Serious: Yes (Hospitalization)
  Sender: FDA-Public Use
  Company Number: PHEH2014US006351

PATIENT
  Age: 50 Year
  Sex: Female

DRUGS (17)
  1. TOBI PODHALER [Suspect]
     Indication: CYSTIC FIBROSIS
     Dosage: 4 DF, BID
     Route: 055
     Dates: start: 20130920
  2. HUMALOG [Concomitant]
     Dosage: 100 U/ML, UNK
  3. PROTONIX [Concomitant]
     Dosage: 40 MG, UNK
  4. CREON [Concomitant]
     Dosage: 24000 U, UNK
  5. LANTUS [Concomitant]
     Dosage: 100 MG/ML, UNK
  6. CEFTRIAXONE [Concomitant]
     Dosage: 2 G, UNK
  7. FLUCONAZOLE [Concomitant]
     Dosage: 200 MG, UNK
  8. ADVAIR DISKUS [Concomitant]
     Dosage: 1 DF, UNK
  9. ALBUTEROL [Concomitant]
     Dosage: 1 DF, UNK
     Route: 055
  10. MEROPENEM [Concomitant]
     Dosage: 1 DF, UNK
  11. ZYRTEC [Concomitant]
     Dosage: 1 DF, UNK
  12. NYSTATIN [Concomitant]
     Dosage: 100000 U/ML, UNK
  13. PANCRELIPASE [Concomitant]
     Dosage: 1 DF, UNK
  14. ALBUTEROL HFA [Concomitant]
     Dosage: 90 UG, UNK
     Route: 055
  15. AQUADEKS [Concomitant]
     Dosage: UNK
  16. VITAMIN D3 [Concomitant]
     Dosage: 50000 U, UNK
  17. HYPERTONIC SALINE SOLUTION [Concomitant]
     Dosage: 7 %, UNK
     Route: 055

REACTIONS (7)
  - Cystic fibrosis [Unknown]
  - Dyspnoea [Unknown]
  - Cough [Unknown]
  - Haemoptysis [Unknown]
  - Asthenia [Unknown]
  - Headache [Unknown]
  - Condition aggravated [Unknown]
